FAERS Safety Report 5069011-X (Version None)
Quarter: 2006Q3

REPORT INFORMATION
  Report Type: 
  Country: None (occurrence: None)
  Receive Date: 20060801
  Receipt Date: 20060801
  Transmission Date: 20061208
  Serious: Yes (Other)
  Sender: FDA-Public Use
  Company Number: None

PATIENT
  Sex: Female
  Weight: 93.8946 kg

DRUGS (4)
  1. LEVOTHYROXINE SODIUM [Suspect]
     Indication: HYPOTHYROIDISM
     Dosage: .175 MG PO QD
     Route: 048
  2. NAPROXEN [Concomitant]
  3. PREMARIN CREAM [Concomitant]
  4. ALBUTEROL [Concomitant]

REACTIONS (1)
  - DYSPHORIA [None]
